FAERS Safety Report 9030780 (Version 1)
Quarter: 2013Q1

REPORT INFORMATION
  Report Type: Spontaneous
  Country: US (occurrence: US)
  Receive Date: 20130123
  Receipt Date: 20130123
  Transmission Date: 20140127
  Serious: Yes (Other)
  Sender: FDA-Public Use
  Company Number: PHEH2013US001634

PATIENT
  Sex: Male

DRUGS (7)
  1. DIOVAN [Suspect]
     Indication: HYPERTENSION
     Dosage: 1 DF, A DAY
     Route: 048
  2. METFORMIN [Suspect]
     Indication: DIABETES MELLITUS
     Dosage: 2 DF, A DAY
     Route: 048
  3. CLONAZEPAM [Suspect]
     Indication: DEPRESSION
  4. INDERAL [Suspect]
     Dosage: 1 DF, DAY
     Route: 048
  5. ZANTAB [Suspect]
     Dosage: 1 DF, DAY
     Route: 048
  6. NEURONTIN [Interacting]
     Dosage: 1 DF,A DAY AS NEED
     Route: 048
  7. ZOLOFT [Interacting]
     Indication: DEPRESSION
     Dosage: 1 DF, A DAY
     Route: 048

REACTIONS (2)
  - Diabetes mellitus [Unknown]
  - Somnolence [Unknown]
